FAERS Safety Report 14426901 (Version 6)
Quarter: 2018Q3

REPORT INFORMATION
  Report Type: Spontaneous
  Country: NL (occurrence: NL)
  Receive Date: 20180123
  Receipt Date: 20180726
  Transmission Date: 20181010
  Serious: Yes (Life-Threatening, Hospitalization)
  Sender: FDA-Public Use
  Company Number: NL-TEVA-2018-NL-848285

PATIENT
  Age: 79 Year
  Sex: Male
  Weight: 73 kg

DRUGS (6)
  1. LERCANIDIPINE10 MG [Suspect]
     Active Substance: LERCANIDIPINE
     Indication: HYPERTENSION
     Dosage: 1X PER DAY 1 PIECE, THERAPY END DATE ASKED BUT UNKNOWN
     Route: 065
     Dates: start: 20170409
  2. MELATONINE 0,2 MG [Concomitant]
     Active Substance: MELATONIN
     Dosage: THERAPY START DATE AND THERAPY END DATE ASKED BUT UNKNOWN
  3. PERINDOPRIL [Suspect]
     Active Substance: PERINDOPRIL
     Indication: HYPERTENSION
     Dosage: 1X PER DAY 1 PIECE, THERAPY END DATE ASKED BUT UNKNOWN
     Route: 065
     Dates: start: 20170614
  4. ALLOPURINOL 50MG [Suspect]
     Active Substance: ALLOPURINOL
     Indication: BLOOD UREA
     Dosage: 1X PER DAY 1 PIECE
     Route: 065
     Dates: start: 20170614, end: 20170711
  5. ALLOPURINOL 50MG [Suspect]
     Active Substance: ALLOPURINOL
     Indication: CRYSTALLURIA
  6. COLCHICINE 0.5 [Suspect]
     Active Substance: COLCHICINE
     Indication: PRODUCT USED FOR UNKNOWN INDICATION
     Dosage: 1X PER DAY 1 PIECE
     Route: 065
     Dates: start: 20170614, end: 20170711

REACTIONS (6)
  - Thrombocytopenia [Unknown]
  - Respiratory failure [Recovered/Resolved]
  - Asthenia [Recovered/Resolved]
  - Multiple organ dysfunction syndrome [Recovered/Resolved]
  - Leukopenia [Unknown]
  - Systemic inflammatory response syndrome [Unknown]

NARRATIVE: CASE EVENT DATE: 201707
